FAERS Safety Report 20182352 (Version 1)
Quarter: 2021Q4

REPORT INFORMATION
  Report Type: Spontaneous
  Country: TR (occurrence: TR)
  Receive Date: 20211214
  Receipt Date: 20211214
  Transmission Date: 20220303
  Serious: Yes (Hospitalization, Other)
  Sender: FDA-Public Use
  Company Number: TR-PFIZER INC-202101701848

PATIENT
  Age: 49 Year
  Sex: Male

DRUGS (2)
  1. SUNITINIB MALATE [Suspect]
     Active Substance: SUNITINIB MALATE
     Indication: Renal cell carcinoma stage IV
     Dosage: 50 MG, CYCLIC (DAILY FOR 2 WEEKS, THEN 1-WEEK INTERVAL)
     Route: 065
  2. BUDESONIDE [Concomitant]
     Active Substance: BUDESONIDE
     Dosage: 3 MG, EVERY 8 HOURS

REACTIONS (1)
  - Colitis [Recovering/Resolving]
